FAERS Safety Report 11420913 (Version 1)
Quarter: 2015Q3

REPORT INFORMATION
  Report Type: Report from Study
  Country: US (occurrence: US)
  Receive Date: 20150826
  Receipt Date: 20150826
  Transmission Date: 20151125
  Serious: No
  Sender: FDA-Public Use
  Company Number: US-CELGENEUS-USA-2015080525

PATIENT
  Sex: Male

DRUGS (2)
  1. NEUPOGEN [Concomitant]
     Active Substance: FILGRASTIM
     Indication: PRODUCT USED FOR UNKNOWN INDICATION
     Route: 050
  2. THALOMID [Suspect]
     Active Substance: THALIDOMIDE
     Indication: PLASMA CELL MYELOMA
     Route: 048

REACTIONS (6)
  - Alopecia [Unknown]
  - Plasma cell myeloma recurrent [Unknown]
  - Stomatitis [Unknown]
  - Neuropathy peripheral [Not Recovered/Not Resolved]
  - Malaise [Unknown]
  - Feeding disorder [Unknown]
